FAERS Safety Report 9927455 (Version 2)
Quarter: 2017Q2

REPORT INFORMATION
  Report Type: Report from Study
  Country: US (occurrence: US)
  Receive Date: 20140227
  Receipt Date: 20170523
  Transmission Date: 20170830
  Serious: Yes (Other)
  Sender: FDA-Public Use
  Company Number: US-ROCHE-1343599

PATIENT
  Age: 62 Year
  Sex: Male

DRUGS (9)
  1. LUCENTIS [Suspect]
     Active Substance: RANIBIZUMAB
     Indication: DRY AGE-RELATED MACULAR DEGENERATION
  2. FLOMAX [Concomitant]
     Active Substance: TAMSULOSIN HYDROCHLORIDE
     Dosage: QD (ONCE DAILY)
     Route: 065
  3. ASPIRIN. [Concomitant]
     Active Substance: ASPIRIN
     Route: 065
  4. ALREX (UNITED STATES) [Concomitant]
     Dosage: BID (TWICE A DAY) IN RIGHT EYE (OD)
     Route: 047
  5. LUCENTIS [Suspect]
     Active Substance: RANIBIZUMAB
     Indication: RETINAL VEIN OCCLUSION
     Dosage: OD (RIGHT EYE)
     Route: 050
  6. LUCENTIS [Suspect]
     Active Substance: RANIBIZUMAB
     Indication: MACULAR DEGENERATION
  7. PRESERVISION AREDS [Concomitant]
     Active Substance: MINERALS\VITAMINS
  8. AVASTIN [Suspect]
     Active Substance: BEVACIZUMAB
     Indication: PRODUCT USED FOR UNKNOWN INDICATION
     Dosage: X 3 DOSAGES
     Route: 065
     Dates: end: 201104
  9. LIPITOR [Concomitant]
     Active Substance: ATORVASTATIN CALCIUM
     Dosage: QD (ONCE DAILY)
     Route: 065

REACTIONS (10)
  - Ocular discomfort [Unknown]
  - Vascular device user [Unknown]
  - Retinal haemorrhage [Unknown]
  - Eye pruritus [Unknown]
  - Vitreous detachment [Unknown]
  - Macular fibrosis [Unknown]
  - Eye irritation [Unknown]
  - Vision blurred [Unknown]
  - Photophobia [Unknown]
  - Ocular hypertension [Unknown]

NARRATIVE: CASE EVENT DATE: 2011
